FAERS Safety Report 13201217 (Version 1)
Quarter: 2017Q1

REPORT INFORMATION
  Report Type: Spontaneous
  Country: US (occurrence: US)
  Receive Date: 20170209
  Receipt Date: 20170209
  Transmission Date: 20170428
  Serious: Yes (Other)
  Sender: FDA-Public Use
  Company Number: US-BRISTOL-MYERS SQUIBB COMPANY-BMS-2017-010888

PATIENT
  Age: 48 Year
  Sex: Female

DRUGS (3)
  1. COUMADIN [Suspect]
     Active Substance: WARFARIN SODIUM
     Indication: PULMONARY EMBOLISM
     Route: 065
  2. COUMADIN [Suspect]
     Active Substance: WARFARIN SODIUM
     Indication: DEEP VEIN THROMBOSIS
     Dosage: 20-30MG A DAY
     Route: 065
  3. COUMADIN [Suspect]
     Active Substance: WARFARIN SODIUM
     Indication: COAGULATION FACTOR V LEVEL ABNORMAL
     Route: 065

REACTIONS (1)
  - Therapeutic response decreased [Unknown]
